FAERS Safety Report 12100907 (Version 1)
Quarter: 2016Q1

REPORT INFORMATION
  Report Type: Spontaneous
  Country: US (occurrence: US)
  Receive Date: 20160222
  Receipt Date: 20160222
  Transmission Date: 20160526
  Serious: Yes (Other)
  Sender: FDA-Public Use
  Company Number: US-SMITH AND NEPHEW, INC-2016SMT00124

PATIENT
  Age: 75 Year
  Sex: Male
  Weight: 79.37 kg

DRUGS (3)
  1. REGRANEX [Suspect]
     Active Substance: BECAPLERMIN
     Indication: LOCALISED INFECTION
     Dosage: UNK, 1X/DAY
     Route: 061
     Dates: start: 201512, end: 201601
  2. UNSPECIFIED MEDICATION(S) [Concomitant]
  3. REGRANEX [Suspect]
     Active Substance: BECAPLERMIN
     Indication: WOUND

REACTIONS (2)
  - Ostectomy [Recovered/Resolved with Sequelae]
  - Off label use [Unknown]

NARRATIVE: CASE EVENT DATE: 201512
